FAERS Safety Report 12820906 (Version 1)
Quarter: 2016Q4

REPORT INFORMATION
  Report Type: Report from Study
  Country: US (occurrence: US)
  Receive Date: 20161007
  Receipt Date: 20161007
  Transmission Date: 20170207
  Serious: Yes (Life-Threatening, Other)
  Sender: FDA-Public Use
  Company Number: US-ROCHE-783999

PATIENT
  Age: 53 Year
  Weight: 78.2 kg

DRUGS (19)
  1. BEVACIZUMAB [Suspect]
     Active Substance: BEVACIZUMAB
     Route: 042
  2. BEVACIZUMAB [Suspect]
     Active Substance: BEVACIZUMAB
     Route: 042
  3. VELIPARIB [Suspect]
     Active Substance: VELIPARIB
     Route: 048
  4. CARBOPLATIN. [Suspect]
     Active Substance: CARBOPLATIN
     Indication: OVARIAN NEOPLASM
     Dosage: REGIMEN I?(CYCLE= 21 DAYS): MAXIMUM = 22 CYCLES?CYCLE 1 AND 2-6:AUC = 6 IV OVER 30 MINS ON DAY 1
     Route: 042
     Dates: start: 20100902
  5. BEVACIZUMAB [Suspect]
     Active Substance: BEVACIZUMAB
     Route: 042
  6. VELIPARIB [Suspect]
     Active Substance: VELIPARIB
     Route: 048
  7. VELIPARIB [Suspect]
     Active Substance: VELIPARIB
     Route: 048
  8. BEVACIZUMAB [Suspect]
     Active Substance: BEVACIZUMAB
     Route: 042
  9. BEVACIZUMAB [Suspect]
     Active Substance: BEVACIZUMAB
     Route: 042
  10. BEVACIZUMAB [Suspect]
     Active Substance: BEVACIZUMAB
     Route: 011
  11. VELIPARIB [Suspect]
     Active Substance: VELIPARIB
     Route: 048
  12. BEVACIZUMAB [Suspect]
     Active Substance: BEVACIZUMAB
     Route: 042
  13. VELIPARIB [Suspect]
     Active Substance: VELIPARIB
     Route: 048
  14. VELIPARIB [Suspect]
     Active Substance: VELIPARIB
     Route: 048
  15. BEVACIZUMAB [Suspect]
     Active Substance: BEVACIZUMAB
     Indication: OVARIAN NEOPLASM
     Dosage: CYCLES 2-6 AND CYCLES 7-22:15MG/KG IV OVER 30-90 MINS ON DAY 1
     Route: 042
  16. BEVACIZUMAB [Suspect]
     Active Substance: BEVACIZUMAB
     Route: 042
  17. VELIPARIB [Suspect]
     Active Substance: VELIPARIB
     Indication: OVARIAN NEOPLASM
     Dosage: REGIMEN I?(CYCLE= 21 DAYS): MAXIMUM = 22 CYCLES?CYCLE 1 AND CYCLE 2-6=50 MG PO BID ON DAYS 1-21
     Route: 048
  18. VELIPARIB [Suspect]
     Active Substance: VELIPARIB
     Route: 048
  19. PACLITAXEL. [Suspect]
     Active Substance: PACLITAXEL
     Indication: OVARIAN NEOPLASM
     Dosage: REGIMEN I:(CYCLE= 21 DAYS): MAX = 22 CYCLES?CYCLE 1 AND CYCLE 2-6:175MG/M2 IV OVER 3 HRS ON DAY 1
     Route: 042
     Dates: start: 20100902

REACTIONS (4)
  - White blood cell count decreased [Unknown]
  - Neutrophil count decreased [Unknown]
  - Platelet count decreased [Unknown]
  - Anaemia [Unknown]

NARRATIVE: CASE EVENT DATE: 20110105
